FAERS Safety Report 15892869 (Version 1)
Quarter: 2019Q1

REPORT INFORMATION
  Report Type: Report from Study
  Country: US (occurrence: US)
  Receive Date: 20190130
  Receipt Date: 20190130
  Transmission Date: 20190417
  Serious: No
  Sender: FDA-Public Use
  Company Number: US-EXELIXIS-CABO-18016919

PATIENT
  Sex: Male

DRUGS (30)
  1. TIZANIDINE. [Concomitant]
     Active Substance: TIZANIDINE
  2. JANUVIA [Concomitant]
     Active Substance: SITAGLIPTIN PHOSPHATE
  3. LABETALOL [Concomitant]
     Active Substance: LABETALOL\LABETALOL HYDROCHLORIDE
  4. DIPHENOXYLATE/ATROPINE [Concomitant]
     Active Substance: ATROPINE\DIPHENOXYLATE
  5. ACETAMIN [Concomitant]
     Active Substance: ACETAMINOPHEN
  6. OXYCODONE/APAP [Concomitant]
     Active Substance: ACETAMINOPHEN\OXYCODONE HYDROCHLORIDE
  7. FERROUS GLUCONATE [Concomitant]
     Active Substance: FERROUS GLUCONATE
  8. OSELTAMIVIR [Concomitant]
     Active Substance: OSELTAMIVIR
  9. NOVOLOG [Concomitant]
     Active Substance: INSULIN ASPART
  10. BISACODYL. [Concomitant]
     Active Substance: BISACODYL
  11. HYDROCODONE BITARTRATE AND ACETAMINOPHEN [Concomitant]
     Active Substance: ACETAMINOPHEN\HYDROCODONE BITARTRATE
  12. LISINOPRIL. [Concomitant]
     Active Substance: LISINOPRIL
  13. SILDENAFIL. [Concomitant]
     Active Substance: SILDENAFIL
  14. DOXYCYCLINE HYCLATE. [Concomitant]
     Active Substance: DOXYCYCLINE HYCLATE
  15. SENNA [Concomitant]
     Active Substance: SENNA LEAF\SENNOSIDES\SENNOSIDES A AND B
  16. AMLODIPINE [Concomitant]
     Active Substance: AMLODIPINE BESYLATE
     Dosage: UNK
  17. PARICALCITOL. [Concomitant]
     Active Substance: PARICALCITOL
  18. FUROSEMIDE. [Concomitant]
     Active Substance: FUROSEMIDE
  19. ONDANSETRON [Concomitant]
     Active Substance: ONDANSETRON
  20. TAMSULOSIN [Concomitant]
     Active Substance: TAMSULOSIN
  21. ZINC OXIDE. [Concomitant]
     Active Substance: ZINC OXIDE
  22. DOCUSATE SODIUM. [Concomitant]
     Active Substance: DOCUSATE SODIUM
  23. CABOMETYX [Suspect]
     Active Substance: CABOZANTINIB S-MALATE
     Indication: RENAL CANCER
     Dosage: 60 MG, QD
     Route: 048
     Dates: start: 20181026
  24. ATORVASTATIN [Concomitant]
     Active Substance: ATORVASTATIN
  25. METHYLPRED [Concomitant]
     Active Substance: METHYLPREDNISOLONE
  26. POLYETHYLENE GLYCOL [Concomitant]
     Active Substance: POLYETHYLENE GLYCOLS
  27. BACLOPHEN [Concomitant]
  28. SODIUM BICARBONATE. [Concomitant]
     Active Substance: SODIUM BICARBONATE
  29. ALLOPURINOL. [Concomitant]
     Active Substance: ALLOPURINOL
  30. VITAMIN B [Concomitant]
     Active Substance: VITAMIN B

REACTIONS (5)
  - Ageusia [Unknown]
  - Nausea [Not Recovered/Not Resolved]
  - Diarrhoea [Not Recovered/Not Resolved]
  - Fungal skin infection [Recovered/Resolved]
  - Decreased appetite [Recovered/Resolved]

NARRATIVE: CASE EVENT DATE: 2018
